FAERS Safety Report 8328897-3 (Version None)
Quarter: 2012Q2

REPORT INFORMATION
  Report Type: 
  Country: None (occurrence: None)
  Receive Date: 20120430
  Receipt Date: 20120330
  Transmission Date: 20120825
  Serious: Yes (Other)
  Sender: FDA-Public Use
  Company Number: 2012P1011548

PATIENT
  Age: 52 Year
  Sex: Female
  Weight: 88.4514 kg

DRUGS (4)
  1. SIMVASTATIN [Concomitant]
  2. BUTALBITAL ACETAMINOPHEN AND CAFFEINE [Suspect]
     Indication: HEADACHE
     Dosage: 1 TABLET;Q4H;PO
     Route: 048
     Dates: start: 20110901
  3. BUTALBITAL ACETAMINOPHEN AND CAFFEINE [Suspect]
     Indication: ARTHRALGIA
     Dosage: 1 TABLET;Q4H;PO
     Route: 048
     Dates: start: 20110901
  4. VITAMIN D [Concomitant]

REACTIONS (4)
  - COUGH [None]
  - ARTHRALGIA [None]
  - MEDICAL DEVICE COMPLICATION [None]
  - ATRIAL FLUTTER [None]
